FAERS Safety Report 10443737 (Version 2)
Quarter: 2014Q3

REPORT INFORMATION
  Report Type: Report from Study
  Country: BR (occurrence: BR)
  Receive Date: 20140910
  Receipt Date: 20140923
  Transmission Date: 20150326
  Serious: Yes (Other)
  Sender: FDA-Public Use
  Company Number: PHHY2014BR115140

PATIENT
  Sex: Male
  Weight: 68 kg

DRUGS (6)
  1. SANDOSTATIN LAR DEPOT [Suspect]
     Active Substance: OCTREOTIDE ACETATE
     Indication: HEPATIC NEOPLASM
     Dosage: 20 MG, QMO
     Dates: start: 201306, end: 201406
  2. PANCREATIN [Concomitant]
     Active Substance: PANCRELIPASE
     Indication: PANCREATIC DISORDER
     Dosage: 2 DF, TID (IN THE MORNING, IN THE AFTERNOON AND AT NIGHT)
  3. SANDOSTATIN LAR DEPOT [Suspect]
     Active Substance: OCTREOTIDE ACETATE
     Indication: PANCREATIC NEOPLASM
     Dosage: 30 MG, QMO
     Dates: start: 201406
  4. LOSARTAN [Concomitant]
     Active Substance: LOSARTAN
  5. SANDOSTATIN LAR DEPOT [Suspect]
     Active Substance: OCTREOTIDE ACETATE
     Dosage: 120 MG, QMO
  6. ATENOLOL. [Concomitant]
     Active Substance: ATENOLOL
     Indication: HYPERTENSION
     Dosage: 4 DF, DAILY

REACTIONS (3)
  - Blood magnesium decreased [Not Recovered/Not Resolved]
  - Weight increased [Unknown]
  - Visual acuity reduced [Recovering/Resolving]
